FAERS Safety Report 7556517-4 (Version None)
Quarter: 2011Q2

REPORT INFORMATION
  Report Type: 
  Country: None (occurrence: None)
  Receive Date: 20110620
  Receipt Date: 20110617
  Transmission Date: 20111010
  Serious: Yes (Hospitalization)
  Sender: FDA-Public Use
  Company Number: US-ROXANE LABORATORIES, INC.-2011-RO-00747RO

PATIENT
  Sex: Female

DRUGS (1)
  1. LITHIUM CARBONATE [Suspect]
     Indication: DEPRESSION

REACTIONS (1)
  - DRUG INEFFECTIVE [None]
